FAERS Safety Report 6840540-9 (Version None)
Quarter: 2010Q3

REPORT INFORMATION
  Report Type: 
  Country: None (occurrence: None)
  Receive Date: 20100714
  Receipt Date: 20100707
  Transmission Date: 20110219
  Serious: Yes (Hospitalization)
  Sender: FDA-Public Use
  Company Number: A0869808A

PATIENT
  Age: 56 Year
  Sex: Male

DRUGS (1)
  1. AVANDAMET [Suspect]

REACTIONS (1)
  - MYOCARDIAL INFARCTION [None]
